FAERS Safety Report 17566783 (Version 1)
Quarter: 2020Q1

REPORT INFORMATION
  Report Type: Spontaneous
  Country: SG (occurrence: SG)
  Receive Date: 20200320
  Receipt Date: 20200320
  Transmission Date: 20200409
  Serious: Yes (Other)
  Sender: FDA-Public Use
  Company Number: SG-JNJFOC-20200322781

PATIENT
  Age: 86 Year
  Sex: Male

DRUGS (13)
  1. SPIRONOLACTONE. [Concomitant]
     Active Substance: SPIRONOLACTONE
     Dosage: 12.5 MG, OM
  2. IPRATROPIUM BROMIDE. [Concomitant]
     Active Substance: IPRATROPIUM BROMIDE
  3. OMEPRAZOLE. [Concomitant]
     Active Substance: OMEPRAZOLE
     Dosage: 20 MG, OM
  4. DIGOXIN. [Concomitant]
     Active Substance: DIGOXIN
     Dosage: 62.5 UG, OM
  5. FUROSEMIDE. [Concomitant]
     Active Substance: FUROSEMIDE
     Dosage: 20 MG, OM
  6. CHOLECALCIFEROL [Concomitant]
     Active Substance: CHOLECALCIFEROL
     Dosage: 1000 U, OM
  7. RIVAROXABAN [Suspect]
     Active Substance: RIVAROXABAN
     Indication: ISCHAEMIC STROKE
  8. SALBUTAMOL [Concomitant]
     Active Substance: ALBUTEROL
     Dosage: UNK
  9. RIVAROXABAN [Suspect]
     Active Substance: RIVAROXABAN
     Indication: ATRIAL FLUTTER
     Dosage: 10 MG, OM
     Route: 048
     Dates: start: 20190417, end: 20190717
  10. AMIODARONE [Suspect]
     Active Substance: AMIODARONE
     Indication: ATRIAL FLUTTER
     Dosage: 200 MG, OM
  11. GLICLAZIDE MR STADA [Concomitant]
     Dosage: 60 MG, OM
  12. SALBUTAMOL [Concomitant]
     Active Substance: ALBUTEROL
     Dosage: UNK
  13. IPRATROPIUM [Concomitant]
     Active Substance: IPRATROPIUM

REACTIONS (7)
  - Product administration error [Unknown]
  - Pemphigoid [Recovering/Resolving]
  - Rash macular [Unknown]
  - Type IV hypersensitivity reaction [Recovering/Resolving]
  - Rash pruritic [Unknown]
  - Rash vesicular [Recovered/Resolved]
  - Labelled drug-drug interaction medication error [Unknown]
